FAERS Safety Report 6924276-1 (Version None)
Quarter: 2010Q3

REPORT INFORMATION
  Report Type: 
  Country: None (occurrence: None)
  Receive Date: 20100811
  Receipt Date: 20100811
  Transmission Date: 20110219
  Serious: Yes (Disabling)
  Sender: FDA-Public Use
  Company Number: None

PATIENT
  Age: 64 Year
  Sex: Female
  Weight: 87.3 kg

DRUGS (17)
  1. DIHYDROERGOTAMINE MESYLATE [Suspect]
     Indication: MIGRAINE
     Dosage: 1MG/ML AND 4MG/ML AS NEEDED IM INJECTION AND NASAL SPRAY
     Route: 030
  2. DIHYDROERGOTAMINE MESYLATE [Suspect]
     Indication: MIGRAINE
     Route: 045
  3. CYCLOBENZAPRINE [Concomitant]
  4. PERCOCET [Concomitant]
  5. NORTRYPTYLINE [Concomitant]
  6. MIGRANAL [Concomitant]
  7. SIMVASTATIN [Concomitant]
  8. CITALOPRAM [Concomitant]
  9. OXYBUTYNIN [Concomitant]
  10. RANITIDINE [Concomitant]
  11. SALSALATE [Concomitant]
  12. LITHIUM CARBONATE [Concomitant]
  13. PREDNISONE [Concomitant]
  14. TOPICAL CAPSAICIN CREAM [Concomitant]
  15. NABUMETONE [Concomitant]
  16. ATENOLOL [Concomitant]
  17. SANSERT [Suspect]
     Indication: MIGRAINE

REACTIONS (15)
  - AORTIC VALVE INCOMPETENCE [None]
  - CARDIAC FAILURE CONGESTIVE [None]
  - CARDIOMEGALY [None]
  - CARDIOVASCULAR DECONDITIONING [None]
  - CARDIOVASCULAR DISORDER [None]
  - DYSPNOEA EXERTIONAL [None]
  - FATIGUE [None]
  - LUNG DISORDER [None]
  - MITRAL VALVE INCOMPETENCE [None]
  - OEDEMA PERIPHERAL [None]
  - PICKWICKIAN SYNDROME [None]
  - PULMONARY VALVE INCOMPETENCE [None]
  - PULMONARY VASCULAR DISORDER [None]
  - TRICUSPID VALVE INCOMPETENCE [None]
  - WHEEZING [None]
